FAERS Safety Report 4540503-2 (Version None)
Quarter: 2004Q4

REPORT INFORMATION
  Report Type: 
  Country: None (occurrence: None)
  Receive Date: 20041228
  Receipt Date: 20041228
  Transmission Date: 20050328
  Serious: No
  Sender: FDA-Public Use
  Company Number: None

PATIENT
  Sex: Female
  Weight: 59.8748 kg

DRUGS (2)
  1. VICOPROFEN [Suspect]
     Indication: BACK PAIN
     Dosage: PO ONE Q 6 H
     Route: 048
     Dates: start: 20031101
  2. VICOPROFEN [Suspect]
     Indication: BURSITIS
     Dosage: PO ONE Q 6 H
     Route: 048
     Dates: start: 20031101

REACTIONS (1)
  - DRUG INEFFECTIVE [None]
